FAERS Safety Report 10712511 (Version 1)
Quarter: 2015Q1

REPORT INFORMATION
  Report Type: Spontaneous
  Country: CN (occurrence: CN)
  Receive Date: 20150115
  Receipt Date: 20150115
  Transmission Date: 20150721
  Serious: Yes (Other)
  Sender: FDA-Public Use
  Company Number: CN-JNJFOC-20150101887

PATIENT
  Age: 1 Year
  Sex: Male
  Weight: 9 kg

DRUGS (6)
  1. PARACETAMOL [Suspect]
     Active Substance: ACETAMINOPHEN
     Indication: PYREXIA
     Route: 054
     Dates: start: 20140418, end: 20140418
  2. OSELTAMIVIR PHOSPHATE [Suspect]
     Active Substance: OSELTAMIVIR PHOSPHATE
     Indication: PYREXIA
     Route: 048
     Dates: start: 20140418, end: 20140423
  3. PIPERACILLIN AND TAZOBACTAM [Suspect]
     Active Substance: PIPERACILLIN SODIUM\TAZOBACTAM SODIUM
     Indication: PYREXIA
     Route: 042
     Dates: start: 20140418, end: 20140423
  4. LYSINE ACETYLSALICYLATE [Suspect]
     Active Substance: ASPIRIN LYSINE
     Indication: PYREXIA
     Route: 042
     Dates: start: 20140418, end: 20140421
  5. MOTRIN [Suspect]
     Active Substance: IBUPROFEN
     Indication: PYREXIA
     Route: 048
     Dates: start: 20140418, end: 20140423
  6. DEXAMETHASONE SODIUM PHOSPHATE. [Suspect]
     Active Substance: DEXAMETHASONE SODIUM PHOSPHATE
     Indication: PYREXIA
     Route: 042
     Dates: start: 20140418, end: 20140423

REACTIONS (4)
  - Myocardial necrosis marker increased [Recovering/Resolving]
  - Leukopenia [Recovering/Resolving]
  - Hepatic enzyme increased [Recovering/Resolving]
  - Thrombocytopenia [Recovering/Resolving]

NARRATIVE: CASE EVENT DATE: 20140424
